FAERS Safety Report 5382357-0 (Version None)
Quarter: 2007Q3

REPORT INFORMATION
  Report Type: 
  Country: None (occurrence: None)
  Receive Date: 20070709
  Receipt Date: 20070629
  Transmission Date: 20080115
  Serious: Yes (Other)
  Sender: FDA-Public Use
  Company Number: RU-SHR-RU-2007-022494

PATIENT
  Age: 41 Year
  Sex: Male

DRUGS (7)
  1. ULTRAVIST 300 [Suspect]
     Indication: ANGIOGRAM CEREBRAL
     Dosage: 150-200ML, 1DOSE
     Route: 040
     Dates: start: 20070614, end: 20070614
  2. SIBAZON [Concomitant]
     Dosage: 5 MG, 1 DOSE
     Dates: start: 20070614, end: 20070614
  3. FENTANYL [Concomitant]
     Dosage: .1 MG, 1 DOSE
     Dates: start: 20070614, end: 20070614
  4. NO-SPA [Concomitant]
     Dosage: 2 ML, 1 DOSE
     Dates: start: 20070614, end: 20070614
  5. ALL OTHER THERAPEUTIC PRODUCTS [Concomitant]
     Dosage: 25 MG, 1 DOSE
     Dates: start: 20070614, end: 20070614
  6. PROMEDOL [Concomitant]
     Dosage: 1, 1 DOSE
     Route: 042
     Dates: start: 20070614, end: 20070614
  7. PROMEDOL [Concomitant]
     Dosage: 1 ML, 1 DOSE
     Route: 030
     Dates: start: 20070615, end: 20070615

REACTIONS (8)
  - BLINDNESS CORTICAL [None]
  - DRUG TOXICITY [None]
  - HYPERTENSIVE ANGIOPATHY [None]
  - LEUKOCYTOSIS [None]
  - MUSCLE SPASMS [None]
  - NAUSEA [None]
  - PSYCHOMOTOR HYPERACTIVITY [None]
  - SUBENDOCARDIAL ISCHAEMIA [None]
